FAERS Safety Report 24963651 (Version 1)
Quarter: 2025Q1

REPORT INFORMATION
  Report Type: Spontaneous
  Country: FR (occurrence: FR)
  Receive Date: 20250213
  Receipt Date: 20250213
  Transmission Date: 20250409
  Serious: Yes (Hospitalization)
  Sender: CHEPLAPHARM
  Company Number: None

PATIENT
  Age: 55 Year
  Sex: Female
  Weight: 124 kg

DRUGS (7)
  1. HYDROXYUREA [Suspect]
     Active Substance: HYDROXYUREA
     Indication: Polycythaemia vera
     Dosage: DAILY DOSE: 3 DOSAGE FORM
     Route: 048
  2. Previscan [Concomitant]
  3. FUROSEMIDE [Concomitant]
     Active Substance: FUROSEMIDE
  4. ATENOLOL [Concomitant]
     Active Substance: ATENOLOL
  5. RISEDRONIC ACID [Concomitant]
     Active Substance: RISEDRONIC ACID
  6. CHOLECALCIFEROL [Concomitant]
     Active Substance: CHOLECALCIFEROL
  7. Cacit Vit D3 [Concomitant]

REACTIONS (1)
  - Dermo-hypodermitis [Recovered/Resolved]

NARRATIVE: CASE EVENT DATE: 20241231
